FAERS Safety Report 4627288-6 (Version None)
Quarter: 2005Q2

REPORT INFORMATION
  Report Type: 
  Country: None (occurrence: None)
  Receive Date: 20050405
  Receipt Date: 20050118
  Transmission Date: 20051028
  Serious: Yes (Death)
  Sender: FDA-Public Use
  Company Number: GB-BOEHRINGER INGELHEIM PHARMACEUTICALS, INC.-2005-UK-00099UK

PATIENT
  Sex: Male

DRUGS (12)
  1. SPIRIVA [Suspect]
  2. COMBIVENT [Suspect]
  3. OXYGEN [Concomitant]
  4. NYSTATIN [Concomitant]
  5. PHOLCODINE [Concomitant]
  6. ALBUTEROL [Concomitant]
  7. SERETIDE [Concomitant]
  8. MOMETASONE FURATE [Concomitant]
  9. LOSARTAN POTASSIUM [Concomitant]
  10. CITALOPRAM HYDROBROMIDE [Concomitant]
  11. ZOPICLONE [Concomitant]
  12. XALATAN [Concomitant]

REACTIONS (1)
  - CHRONIC OBSTRUCTIVE AIRWAYS DISEASE EXACERBATED [None]
